FAERS Safety Report 8818462 (Version 1)
Quarter: 2012Q4

REPORT INFORMATION
  Report Type: 
  Country: DE (occurrence: DE)
  Receive Date: 20121001
  Receipt Date: 20121001
  Transmission Date: 20130627
  Serious: Yes (Hospitalization, Other)
  Sender: FDA-Public Use
  Company Number: DE-ELI_LILLY_AND_COMPANY-DE201209007263

PATIENT
  Sex: Female

DRUGS (2)
  1. FORSTEO [Suspect]
     Indication: OSTEOPOROSIS
     Dosage: UNK, qd
     Route: 058
     Dates: start: 20111227
  2. FORSTEO [Suspect]
     Dosage: UNK, qd
     Route: 058
     Dates: start: 20120924

REACTIONS (3)
  - Pelvic fracture [Unknown]
  - Rib fracture [Unknown]
  - Fall [Unknown]
